FAERS Safety Report 4970004-9 (Version None)
Quarter: 2006Q1

REPORT INFORMATION
  Report Type: 
  Country: None (occurrence: None)
  Receive Date: 20060202
  Receipt Date: 20051114
  Transmission Date: 20060701
  Serious: Yes (Other)
  Sender: FDA-Public Use
  Company Number: US-2005-021537

PATIENT
  Age: 26 Year
  Sex: Female
  Weight: 101.6 kg

DRUGS (4)
  1. MIRENA [Suspect]
     Indication: CONTRACEPTION
     Dosage: 20UG/DAY CONT INTRAUTERINE
     Route: 015
     Dates: start: 20041202, end: 20051005
  2. IBUPROFEN [Concomitant]
  3. MULTIVITAMINS (PANTHENOL, RETINOL) [Concomitant]
  4. LEXAPRO [Concomitant]

REACTIONS (3)
  - BLOOD PRESSURE SYSTOLIC INCREASED [None]
  - PELVIC PAIN [None]
  - UTERINE PERFORATION [None]
